FAERS Safety Report 9174091 (Version 2)
Quarter: 2013Q1

REPORT INFORMATION
  Report Type: Spontaneous
  Country: US (occurrence: None)
  Receive Date: 20130313
  Receipt Date: 20130320
  Transmission Date: 20140127
  Serious: Yes (Hospitalization)
  Sender: FDA-Public Use
  Company Number: 2013-0304

PATIENT
  Age: 73 Year
  Sex: Female

DRUGS (2)
  1. KYPROLIS (CARFILZOMIB) (INJECTION FOR INFUSION) (CARFILZOMIB) [Suspect]
     Indication: PLASMA CELL MYELOMA
     Route: 042
     Dates: start: 20130212
  2. ASA (ACETYLSALICYLIC ACID0(ACETYLSALICYLIC ACID) [Concomitant]

REACTIONS (5)
  - Headache [None]
  - Nausea [None]
  - Blood creatinine abnormal [None]
  - Protein total abnormal [None]
  - Dialysis [None]
